FAERS Safety Report 7011858-4 (Version None)
Quarter: 2010Q3

REPORT INFORMATION
  Report Type: 
  Country: None (occurrence: None)
  Receive Date: 20100924
  Receipt Date: 20100916
  Transmission Date: 20110219
  Serious: Yes (Other)
  Sender: FDA-Public Use
  Company Number: GB-ASTRAZENECA-2010SE43753

PATIENT
  Age: 78 Year
  Sex: Female

DRUGS (5)
  1. OMEPRAZOLE [Suspect]
  2. ATENOLOL [Concomitant]
  3. SIMVASTATIN [Concomitant]
  4. ISOSORBIDE MONONITRATE [Concomitant]
  5. PREDNISOLONE [Concomitant]
     Indication: TEMPORAL ARTERITIS

REACTIONS (1)
  - CUTANEOUS LUPUS ERYTHEMATOSUS [None]
